FAERS Safety Report 14488790 (Version 1)
Quarter: 2018Q1

REPORT INFORMATION
  Report Type: Report from Study
  Country: FR (occurrence: FR)
  Receive Date: 20180205
  Receipt Date: 20180205
  Transmission Date: 20180509
  Serious: Yes (Other)
  Sender: FDA-Public Use
  Company Number: FR-BAUSCH-BL-2018-002396

PATIENT
  Age: 76 Year
  Sex: Male

DRUGS (29)
  1. LANSOPRAZOLE. [Concomitant]
     Active Substance: LANSOPRAZOLE
     Indication: PROPHYLAXIS
  2. DUPHALAC [Concomitant]
     Active Substance: LACTULOSE
     Indication: PRODUCT USED FOR UNKNOWN INDICATION
  3. DALACIN [Concomitant]
     Active Substance: CLINDAMYCIN
     Indication: PRODUCT USED FOR UNKNOWN INDICATION
  4. GENTAMICIN. [Suspect]
     Active Substance: GENTAMICIN
     Indication: OSTEOMYELITIS
     Route: 042
     Dates: start: 20170327, end: 20170327
  5. TEICOPLANIN [Suspect]
     Active Substance: TEICOPLANIN
     Indication: OSTEOMYELITIS
     Route: 042
     Dates: start: 20170327, end: 20170327
  6. CLINDAMYCIN. [Concomitant]
     Active Substance: CLINDAMYCIN
     Indication: PRODUCT USED FOR UNKNOWN INDICATION
  7. KARDEGIC [Concomitant]
     Active Substance: ASPIRIN DL-LYSINE
     Indication: PRODUCT USED FOR UNKNOWN INDICATION
  8. KAYEXALATE [Concomitant]
     Active Substance: SODIUM POLYSTYRENE SULFONATE
     Indication: PRODUCT USED FOR UNKNOWN INDICATION
  9. SIMVASTATIN. [Concomitant]
     Active Substance: SIMVASTATIN
     Indication: PRODUCT USED FOR UNKNOWN INDICATION
  10. METFORMIN [Concomitant]
     Active Substance: METFORMIN HYDROCHLORIDE
     Indication: PRODUCT USED FOR UNKNOWN INDICATION
  11. LANTUS [Concomitant]
     Active Substance: INSULIN GLARGINE
     Indication: PRODUCT USED FOR UNKNOWN INDICATION
  12. HYPERIUM [Concomitant]
     Active Substance: RILMENIDINE PHOSPHATE
     Indication: PRODUCT USED FOR UNKNOWN INDICATION
  13. GAVISCON [Concomitant]
     Active Substance: ALUMINUM HYDROXIDE\MAGNESIUM CARBONATE
     Indication: PRODUCT USED FOR UNKNOWN INDICATION
  14. TEICOPLANIN [Suspect]
     Active Substance: TEICOPLANIN
     Route: 042
     Dates: start: 20170330, end: 20170402
  15. CALCIPARINE [Concomitant]
     Active Substance: HEPARIN CALCIUM
     Indication: PRODUCT USED FOR UNKNOWN INDICATION
  16. PANTOPRAZOLE [Concomitant]
     Active Substance: PANTOPRAZOLE
     Indication: PROPHYLAXIS
  17. IRBESARTAN. [Concomitant]
     Active Substance: IRBESARTAN
     Indication: PRODUCT USED FOR UNKNOWN INDICATION
  18. FUNGIZONE [Concomitant]
     Active Substance: AMPHOTERICIN B
     Indication: PRODUCT USED FOR UNKNOWN INDICATION
  19. FUCIDINE [Concomitant]
     Active Substance: FUSIDIC ACID
     Indication: PRODUCT USED FOR UNKNOWN INDICATION
  20. INEXIUM [Concomitant]
     Active Substance: ESOMEPRAZOLE
     Indication: PRODUCT USED FOR UNKNOWN INDICATION
  21. AMLODIPINE [Concomitant]
     Active Substance: AMLODIPINE BESYLATE
     Indication: PRODUCT USED FOR UNKNOWN INDICATION
  22. LOVENOX [Concomitant]
     Active Substance: ENOXAPARIN SODIUM
     Indication: PRODUCT USED FOR UNKNOWN INDICATION
  23. ATENOLOL. [Concomitant]
     Active Substance: ATENOLOL
     Indication: PRODUCT USED FOR UNKNOWN INDICATION
  24. TEICOPLANIN [Suspect]
     Active Substance: TEICOPLANIN
     Indication: ARTHRITIS INFECTIVE
     Route: 042
     Dates: start: 20170328, end: 20170328
  25. ESIDREX [Concomitant]
     Active Substance: HYDROCHLOROTHIAZIDE
     Indication: PRODUCT USED FOR UNKNOWN INDICATION
  26. AMOXICILLIN. [Concomitant]
     Active Substance: AMOXICILLIN
     Indication: PRODUCT USED FOR UNKNOWN INDICATION
  27. LASILIX [Concomitant]
     Active Substance: FUROSEMIDE
     Indication: PRODUCT USED FOR UNKNOWN INDICATION
  28. RIFADINE [Concomitant]
     Active Substance: RIFAMPIN
     Indication: PRODUCT USED FOR UNKNOWN INDICATION
  29. NOVORAPID [Concomitant]
     Active Substance: INSULIN ASPART
     Indication: PRODUCT USED FOR UNKNOWN INDICATION

REACTIONS (4)
  - Blood creatinine increased [Not Recovered/Not Resolved]
  - Accidental overdose [Unknown]
  - Neutropenia [Recovered/Resolved]
  - Gastrointestinal erosion [Unknown]

NARRATIVE: CASE EVENT DATE: 20170329
